FAERS Safety Report 22119107 (Version 1)
Quarter: 2023Q1

REPORT INFORMATION
  Report Type: Spontaneous
  Country: US (occurrence: US)
  Receive Date: 20230321
  Receipt Date: 20230321
  Transmission Date: 20230417
  Serious: Yes (Other)
  Sender: FDA-Public Use
  Company Number: US-drreddys-LIT/USA/23/0162559

PATIENT
  Age: 20 Year
  Sex: Male

DRUGS (4)
  1. LORAZEPAM [Suspect]
     Active Substance: LORAZEPAM
     Indication: Psychiatric symptom
     Dosage: LOW DOSE
  2. DAPSONE [Suspect]
     Active Substance: DAPSONE
     Indication: Lepromatous leprosy
  3. CLOFAZIMINE [Suspect]
     Active Substance: CLOFAZIMINE
     Indication: Lepromatous leprosy
  4. RIFAMPIN [Suspect]
     Active Substance: RIFAMPIN
     Indication: Lepromatous leprosy

REACTIONS (2)
  - Bipolar disorder [Recovering/Resolving]
  - Adrenal insufficiency [Unknown]
